FAERS Safety Report 6936984-7 (Version None)
Quarter: 2010Q3

REPORT INFORMATION
  Report Type: 
  Country: None (occurrence: None)
  Receive Date: 20100823
  Receipt Date: 20100809
  Transmission Date: 20110219
  Serious: Yes (Hospitalization, Other)
  Sender: FDA-Public Use
  Company Number: PHHY2010BR53190

PATIENT
  Sex: Female

DRUGS (12)
  1. DIOVAN [Suspect]
     Indication: HYPERTENSION
     Dosage: 1 (160 MG) DF
     Route: 048
  2. DIOVAN [Suspect]
     Dosage: 2 (160 MG) DF
     Route: 048
  3. MONOCORDIL [Concomitant]
     Indication: INFARCTION
     Dosage: ONE TABLET DAILY
     Route: 048
  4. CAPOTEN [Concomitant]
     Indication: INFARCTION
     Dosage: ONE TABLET (50 MG) DAILY
     Route: 048
  5. ASPIRIN [Concomitant]
     Indication: INFARCTION
     Dosage: ONE TABLET (100 MG) DAILY
     Route: 048
  6. PLAVIX [Concomitant]
     Indication: INFARCTION
     Dosage: ONE TABLET DAILY
     Route: 048
  7. SIMVASTATIN [Concomitant]
     Dosage: ONE TABLET (40 MG) DAILY
     Route: 048
  8. OMEPRAZOLE [Concomitant]
     Indication: ABDOMINAL DISCOMFORT
     Dosage: ONE TABLET (40 MG) DAILY
     Route: 048
  9. AMLODIPINE BESYLATE [Concomitant]
     Dosage: ONE TABLET (10 MG) DAILY
     Route: 048
  10. ALDACTONE [Concomitant]
     Dosage: ONE TABLET (100 MG) DAILY,
     Route: 048
  11. HIDRION [Concomitant]
     Dosage: ONE TABLET DAILY
     Route: 048
  12. ANCORON [Concomitant]
     Dosage: ONE TABLET DAILY
     Route: 048

REACTIONS (2)
  - CARDIAC ARREST [None]
  - MYOCARDIAL INFARCTION [None]
